FAERS Safety Report 19320265 (Version 7)
Quarter: 2022Q1

REPORT INFORMATION
  Report Type: Report from Study
  Country: US (occurrence: US)
  Receive Date: 20210527
  Receipt Date: 20220302
  Transmission Date: 20220423
  Serious: Yes (Other)
  Sender: FDA-Public Use
  Company Number: NVSC2021US111642

PATIENT
  Sex: Male
  Weight: 74.84 kg

DRUGS (3)
  1. ENTRESTO [Suspect]
     Active Substance: SACUBITRIL\VALSARTAN
     Indication: Cardiac failure congestive
     Dosage: UNK
     Route: 065
     Dates: start: 202103
  2. ENTRESTO [Suspect]
     Active Substance: SACUBITRIL\VALSARTAN
     Dosage: 50 MG, BID (24/26 MG)
     Route: 048
     Dates: start: 20210310
  3. AMIODARONE [Suspect]
     Active Substance: AMIODARONE
     Indication: Atrial fibrillation
     Dosage: 200 MG
     Route: 048
     Dates: start: 202104, end: 20210617

REACTIONS (9)
  - Nephrolithiasis [Unknown]
  - Blood urine present [Unknown]
  - Hypothyroidism [Unknown]
  - Memory impairment [Unknown]
  - Post procedural contusion [Recovering/Resolving]
  - Incision site haemorrhage [Recovering/Resolving]
  - Heart rate irregular [Recovering/Resolving]
  - Fluid retention [Recovering/Resolving]
  - Weight decreased [Recovering/Resolving]

NARRATIVE: CASE EVENT DATE: 20210101
